FAERS Safety Report 12991449 (Version 1)
Quarter: 2016Q4

REPORT INFORMATION
  Report Type: Spontaneous
  Country: AU (occurrence: AU)
  Receive Date: 20161201
  Receipt Date: 20161201
  Transmission Date: 20170207
  Serious: Yes (Other)
  Sender: FDA-Public Use
  Company Number: AU-ABBVIE-16K-008-1791277-00

PATIENT
  Age: 11 Year
  Sex: Female

DRUGS (8)
  1. HUMIRA [Suspect]
     Active Substance: ADALIMUMAB
     Indication: JUVENILE IDIOPATHIC ARTHRITIS
     Dosage: CONVENTIONAL  DOSE
     Route: 058
  2. TOCILIZUMAB [Suspect]
     Active Substance: TOCILIZUMAB
     Indication: JUVENILE IDIOPATHIC ARTHRITIS
     Dosage: CONVENTIONAL DOSES
     Route: 065
  3. RITUXIMAB [Suspect]
     Active Substance: RITUXIMAB
     Indication: JUVENILE IDIOPATHIC ARTHRITIS
     Dosage: TWO DOSES
     Route: 065
  4. PREDNISONE. [Concomitant]
     Active Substance: PREDNISONE
     Indication: PRODUCT USED FOR UNKNOWN INDICATION
     Route: 048
  5. HUMIRA [Suspect]
     Active Substance: ADALIMUMAB
     Dosage: DOUBLE DOSE
     Route: 058
  6. FOLIC ACID. [Concomitant]
     Active Substance: FOLIC ACID
     Indication: PRODUCT USED FOR UNKNOWN INDICATION
  7. TOCILIZUMAB [Suspect]
     Active Substance: TOCILIZUMAB
     Dosage: DOUBLE DOSE (FORTNIGHTLY), IV INFUSION
     Route: 042
     Dates: start: 201602
  8. ETANERCEPT [Suspect]
     Active Substance: ETANERCEPT
     Indication: JUVENILE IDIOPATHIC ARTHRITIS
     Dosage: STANDARD DOSE
     Route: 065

REACTIONS (9)
  - Drug effect incomplete [Unknown]
  - Obesity [Unknown]
  - Social avoidant behaviour [Unknown]
  - Juvenile idiopathic arthritis [Unknown]
  - Drug ineffective [Unknown]
  - Osteoarthritis [Unknown]
  - Fine motor skill dysfunction [Unknown]
  - Activities of daily living impaired [Unknown]
  - Spinal disorder [Unknown]
